FAERS Safety Report 6208910-X (Version None)
Quarter: 2009Q2

REPORT INFORMATION
  Report Type: 
  Country: None (occurrence: None)
  Receive Date: 20090529
  Receipt Date: 20090521
  Transmission Date: 20091009
  Serious: Yes (Hospitalization)
  Sender: FDA-Public Use
  Company Number: B0576479A

PATIENT
  Age: 57 Year
  Sex: Female

DRUGS (1)
  1. VALACYCLOVIR HCL [Suspect]
     Indication: HERPES ZOSTER
     Dosage: 500MG PER DAY
     Route: 065

REACTIONS (4)
  - DECREASED APPETITE [None]
  - DEPRESSED LEVEL OF CONSCIOUSNESS [None]
  - NEUROTOXICITY [None]
  - SPEECH DISORDER [None]
